FAERS Safety Report 5184185-8 (Version None)
Quarter: 2006Q4

REPORT INFORMATION
  Report Type: 
  Country: None (occurrence: None)
  Receive Date: 20061220
  Receipt Date: 20060215
  Transmission Date: 20070319
  Serious: No
  Sender: FDA-Public Use
  Company Number: US-GLAXOSMITHKLINE-A0593830A

PATIENT
  Age: 24 Year
  Sex: Female

DRUGS (8)
  1. NICODERM CQ [Suspect]
     Route: 062
     Dates: start: 20060205
  2. PROVIGIL [Concomitant]
  3. KLONOPIN [Concomitant]
  4. VISTARIL [Concomitant]
  5. LEXAPRO [Concomitant]
  6. RESPACAL [Concomitant]
  7. TOPAMAX [Concomitant]
  8. ZONEGRAN [Concomitant]

REACTIONS (3)
  - ANXIETY [None]
  - INTENTIONAL DRUG MISUSE [None]
  - TREMOR [None]
